FAERS Safety Report 5285936-4 (Version None)
Quarter: 2007Q2

REPORT INFORMATION
  Report Type: 
  Country: None (occurrence: None)
  Receive Date: 20070404
  Receipt Date: 20070326
  Transmission Date: 20071010
  Serious: Yes (Other)
  Sender: FDA-Public Use
  Company Number: HQWYE054129MAR07

PATIENT
  Sex: Female

DRUGS (1)
  1. IBUPROFEN [Suspect]
     Indication: PATENT DUCTUS ARTERIOSUS
     Dosage: 10 MG/KG AND FOLLOWED BY TWO DOSES OF 5MG/KG AT 24 HOURS AND 48 HOURS LATER
     Route: 048

REACTIONS (1)
  - RENAL FAILURE ACUTE [None]
